FAERS Safety Report 16871759 (Version 4)
Quarter: 2019Q4

REPORT INFORMATION
  Report Type: Spontaneous
  Country: NL (occurrence: NL)
  Receive Date: 20191001
  Receipt Date: 20191207
  Transmission Date: 20200122
  Serious: Yes (Hospitalization)
  Sender: FDA-Public Use
  Company Number: NL-AUROBINDO-AUR-APL-2019-063018

PATIENT
  Age: 60 Year
  Sex: Male
  Weight: 80.5 kg

DRUGS (19)
  1. FENTANYL. [Concomitant]
     Active Substance: FENTANYL
     Indication: PAIN
     Dosage: 37 MICROGRAM,FREQUENCY = OTHER
     Route: 062
     Dates: start: 20190705, end: 20190814
  2. DEXAMETHASON [Suspect]
     Active Substance: DEXAMETHASONE
     Dosage: 40 MILLIGRAM
     Route: 048
     Dates: start: 20190913
  3. LENALIDOMIDE [Suspect]
     Active Substance: LENALIDOMIDE
     Dosage: 25 MILLIGRAM, ONCE A DAY (CYCLE 2 DAY 1)
     Route: 048
     Dates: start: 20190816
  4. DEXAMETHASON [Suspect]
     Active Substance: DEXAMETHASONE
     Indication: PLASMA CELL MYELOMA
     Dosage: 40 MILLIGRAM
     Route: 048
     Dates: start: 20190702
  5. LENALIDOMIDE [Suspect]
     Active Substance: LENALIDOMIDE
     Indication: PLASMA CELL MYELOMA
     Dosage: 25 MILLIGRAM, MED KIT NO. A2578AB
     Route: 048
     Dates: start: 20190702
  6. LENALIDOMIDE [Suspect]
     Active Substance: LENALIDOMIDE
     Dosage: 25 MILLIGRAM, CYCLICAL (CYCLE 3 DAY 1)
     Route: 048
     Dates: start: 20190913
  7. METOCLOPRAMIDE. [Concomitant]
     Active Substance: METOCLOPRAMIDE
     Indication: NAUSEA
     Dosage: 10 MILLIGRAM, AS NECESSARY
     Route: 048
     Dates: start: 20190703
  8. DEXAMETHASON [Suspect]
     Active Substance: DEXAMETHASONE
     Dosage: 20 MILLIGRAM
     Route: 048
     Dates: start: 20190709
  9. VELCADE [Suspect]
     Active Substance: BORTEZOMIB
     Dosage: 2.2 MILLIGRAM
     Route: 058
     Dates: start: 20190715, end: 20190715
  10. FENTANYL. [Concomitant]
     Active Substance: FENTANYL
     Dosage: 25 MICROGRAM
     Route: 062
     Dates: start: 20190814
  11. DEXAMETHASON [Suspect]
     Active Substance: DEXAMETHASONE
     Dosage: UNK
     Route: 048
     Dates: start: 20190816
  12. MOVICOLON [Concomitant]
     Active Substance: POLYETHYLENE GLYCOL 3350\POTASSIUM CHLORIDE\SODIUM BICARBONATE\SODIUM CHLORIDE
     Indication: CONSTIPATION
     Dosage: 1 DOSAGE FORM, ONCE A DAY,1 SACHET
     Route: 048
     Dates: start: 20190607
  13. PANTOPRAZOL AUROBINDO [Concomitant]
     Active Substance: PANTOPRAZOLE SODIUM
     Indication: INFECTION PROPHYLAXIS
     Dosage: 20 MILLIGRAM, ONCE A DAY
     Route: 048
  14. VELCADE [Suspect]
     Active Substance: BORTEZOMIB
     Dosage: UNK, CYCLICAL (CYCLE 2 DAY 1)
     Route: 058
     Dates: start: 20190816
  15. PREDNISONE. [Concomitant]
     Active Substance: PREDNISONE
     Indication: RASH
     Dosage: 15 MILLIGRAM, ONCE A DAY
     Route: 048
     Dates: start: 20190726
  16. VELCADE [Suspect]
     Active Substance: BORTEZOMIB
     Indication: PLASMA CELL MYELOMA
     Dosage: 2.6 MILLIGRAM
     Route: 058
     Dates: start: 20190702, end: 20190712
  17. VELCADE [Suspect]
     Active Substance: BORTEZOMIB
     Dosage: 2.6 MILLIGRAM, CYCLICAL (CYCLE 3 DAY 1)
     Route: 058
     Dates: start: 20190913
  18. VELCADE [Suspect]
     Active Substance: BORTEZOMIB
     Dosage: 2.6 MILLIGRAM, CYCLICAL (CYCLE 3 DAY 4)
     Route: 058
     Dates: start: 20190917
  19. OXYCODONE [Concomitant]
     Active Substance: OXYCODONE
     Indication: PAIN
     Dosage: 10 MILLIGRAM,FREQUENCY = OTHER
     Route: 048
     Dates: start: 20190703

REACTIONS (1)
  - Pyrexia [Recovered/Resolved]

NARRATIVE: CASE EVENT DATE: 20190805
